FAERS Safety Report 6635987-X (Version None)
Quarter: 2010Q1

REPORT INFORMATION
  Report Type: 
  Country: None (occurrence: None)
  Receive Date: 20100310
  Receipt Date: 20100302
  Transmission Date: 20100710
  Serious: Yes (Death, Hospitalization)
  Sender: FDA-Public Use
  Company Number: 2008JP003278

PATIENT
  Age: 71 Year
  Sex: Female
  Weight: 42 kg

DRUGS (15)
  1. PROGRAF [Suspect]
     Indication: RHEUMATOID ARTHRITIS
     Dosage: SEE IMAGE
     Route: 048
     Dates: start: 20080308, end: 20080508
  2. PREDNISOLONE [Concomitant]
  3. RABEPRAZOLE SODIUM [Concomitant]
  4. CLARITHROMYCIN [Concomitant]
  5. ONEALFA (ALFACALCIDOL) [Concomitant]
  6. FOSAMAC (ALENDRONATE SODIUM) [Concomitant]
  7. BAKUMONDOUTO (HERBAL EXTRACT NOS) [Concomitant]
  8. MUCOSOLVAN (AMBROXOL) [Concomitant]
  9. MEDICON (DEXTROMETHORPHAN HYDROBROMIDE) [Concomitant]
  10. DIHYDROCODEINE PHOSPHATE (DIHYDROCODEINE PHOSPHATE) [Concomitant]
  11. NEOPHYLLIN (DIPROPHYLLINE) [Concomitant]
  12. LASIX [Concomitant]
  13. FUNGUARD (MICAFUNGIN) [Concomitant]
  14. ALBUMIN (HUMAN) [Concomitant]
  15. CEFTAZIDIME [Concomitant]

REACTIONS (3)
  - INTERSTITIAL LUNG DISEASE [None]
  - PNEUMONIA BACTERIAL [None]
  - RESPIRATORY FAILURE [None]
